FAERS Safety Report 25324612 (Version 1)
Quarter: 2025Q2

REPORT INFORMATION
  Report Type: Spontaneous
  Country: US (occurrence: None)
  Receive Date: 20250516
  Receipt Date: 20250516
  Transmission Date: 20250716
  Serious: Yes (Hospitalization)
  Sender: FDA-CTU
  Company Number: None

PATIENT
  Age: 47 Year
  Sex: Female
  Weight: 59.6 kg

DRUGS (1)
  1. ENFORTUMAB VEDOTIN [Suspect]
     Active Substance: ENFORTUMAB VEDOTIN
     Indication: Adenocarcinoma of colon
     Route: 042
     Dates: start: 20250402

REACTIONS (16)
  - Pneumothorax [None]
  - Malignant ascites [None]
  - Malignant gastrointestinal obstruction [None]
  - Dyspnoea [None]
  - Vomiting [None]
  - Hypotension [None]
  - Oesophageal dilatation [None]
  - Pleural effusion [None]
  - Pulmonary oedema [None]
  - Lung consolidation [None]
  - Aspiration [None]
  - Blood lactic acid abnormal [None]
  - Oesophagitis [None]
  - Sepsis [None]
  - Haematemesis [None]
  - General physical health deterioration [None]

NARRATIVE: CASE EVENT DATE: 20250505
